FAERS Safety Report 5511425-5 (Version None)
Quarter: 2007Q4

REPORT INFORMATION
  Report Type: 
  Country: None (occurrence: None)
  Receive Date: 20071109
  Receipt Date: 20071107
  Transmission Date: 20080405
  Serious: Yes (Death)
  Sender: FDA-Public Use
  Company Number: US-JNJFOC-20071002932

PATIENT
  Age: 4 Month
  Sex: Male
  Weight: 3.99 kg

DRUGS (4)
  1. TYLENOL [Suspect]
     Indication: NASOPHARYNGITIS
     Dosage: 0.2 TO 0.3 ML ONCE OR TWICE A DAY
     Route: 048
  2. TYLENOL [Suspect]
     Indication: COUGH
     Dosage: 0.2 TO 0.3 ML EVERY 8 HOURS
     Route: 048
  3. TYLENOL [Suspect]
     Indication: NASOPHARYNGITIS
     Dosage: 0.2 TO 0.3 ML ONCE OR TWICE A DAY
     Route: 048
  4. TYLENOL [Suspect]
     Indication: COUGH
     Dosage: 0.2 TO 0.3 ML EVERY 8 HOURS
     Route: 048

REACTIONS (2)
  - DEATH [None]
  - PYREXIA [None]
